FAERS Safety Report 15810236 (Version 1)
Quarter: 2019Q1

REPORT INFORMATION
  Report Type: Spontaneous
  Country: US (occurrence: US)
  Receive Date: 20190111
  Receipt Date: 20190111
  Transmission Date: 20190417
  Serious: Yes (Other)
  Sender: FDA-Public Use
  Company Number: US-ROCHE-2173814

PATIENT
  Sex: Female
  Weight: 67.65 kg

DRUGS (3)
  1. RITUXAN [Suspect]
     Active Substance: RITUXIMAB
     Indication: RHEUMATOID ARTHRITIS
     Dosage: 2 WEEKS APART EVERY 6 MONTHS
     Route: 042
     Dates: start: 2009
  2. RITUXAN [Suspect]
     Active Substance: RITUXIMAB
     Route: 042
     Dates: start: 20180322
  3. METHOTREXATE. [Concomitant]
     Active Substance: METHOTREXATE
     Dosage: ONGOING:UNKNOWN
     Route: 065

REACTIONS (2)
  - Fungal infection [Not Recovered/Not Resolved]
  - Bacterial infection [Not Recovered/Not Resolved]

NARRATIVE: CASE EVENT DATE: 2010
